FAERS Safety Report 20920958 (Version 1)
Quarter: 2022Q2

REPORT INFORMATION
  Report Type: Spontaneous
  Country: US (occurrence: US)
  Receive Date: 20220606
  Receipt Date: 20220606
  Transmission Date: 20220720
  Serious: No
  Sender: FDA-Public Use
  Company Number: US-BRISTOL-MYERS SQUIBB COMPANY-2022-038582

PATIENT
  Age: 89 Year
  Sex: Female

DRUGS (1)
  1. POMALYST [Suspect]
     Active Substance: POMALIDOMIDE
     Indication: Plasma cell myeloma
     Dosage: FREQ- TAKE 1 CAPSULE BY MOUTH AT THE SAME TIME DAILY ON DAYS 1-21 OF EACH 28 DAY CYCLE.

REACTIONS (2)
  - Urinary tract infection [Recovered/Resolved]
  - Vomiting [Recovered/Resolved]
